FAERS Safety Report 10095990 (Version 1)
Quarter: 2014Q2

REPORT INFORMATION
  Report Type: Spontaneous
  Country: US (occurrence: US)
  Receive Date: 20140422
  Receipt Date: 20140422
  Transmission Date: 20141212
  Serious: Yes (Other)
  Sender: FDA-Public Use
  Company Number: US-GLAXOSMITHKLINE-A1069458A

PATIENT
  Age: 39 Year
  Sex: Female

DRUGS (4)
  1. LAMICTAL [Suspect]
     Indication: CONVULSION
     Route: 065
  2. LAMOTRIGINE [Suspect]
     Dosage: 200MG TWICE PER DAY
  3. AMOXICILLIN [Concomitant]
     Indication: SIALOADENITIS
  4. BIRTH CONTROL PILLS [Concomitant]

REACTIONS (6)
  - Convulsion [Unknown]
  - Sialoadenitis [Unknown]
  - Feeling abnormal [Recovering/Resolving]
  - Food poisoning [Unknown]
  - Vomiting [Unknown]
  - Malaise [Unknown]
